FAERS Safety Report 20049795 (Version 1)
Quarter: 2021Q4

REPORT INFORMATION
  Report Type: Spontaneous
  Country: BR (occurrence: BR)
  Receive Date: 20211109
  Receipt Date: 20211109
  Transmission Date: 20220303
  Serious: Yes (Other)
  Sender: FDA-Public Use
  Company Number: BR-NOVOPROD-863476

PATIENT
  Age: 12 Year
  Sex: Male
  Weight: 28.5 kg

DRUGS (7)
  1. TRESIBA [Suspect]
     Active Substance: INSULIN DEGLUDEC
     Dosage: 14 IU, QD
     Route: 065
  2. TRESIBA [Suspect]
     Active Substance: INSULIN DEGLUDEC
     Dosage: 11 IU, QD (DOSE REDUCED)
     Route: 065
  3. TRESIBA [Suspect]
     Active Substance: INSULIN DEGLUDEC
     Dosage: 12 IU, QD
     Route: 065
  4. TRESIBA [Suspect]
     Active Substance: INSULIN DEGLUDEC
     Indication: Product used for unknown indication
     Dosage: 12 IU, QD
     Route: 065
  5. FIASP [Suspect]
     Active Substance: INSULIN ASPART
     Dosage: 0.75U/KG/DAY
     Route: 065
  6. FIASP [Suspect]
     Active Substance: INSULIN ASPART
     Indication: Product used for unknown indication
     Dosage: 5-2-4: 0.8 U/KG/DAY
     Route: 065
  7. FIASP [Suspect]
     Active Substance: INSULIN ASPART
     Dosage: 1:7G BREAKFAST, 1:15G AT LUNCH AND SNACK AND 1:20G AT DINNER
     Route: 065

REACTIONS (3)
  - Hepatic mass [Unknown]
  - Blood glucose increased [Unknown]
  - Blood glucose decreased [Unknown]

NARRATIVE: CASE EVENT DATE: 20210101
